FAERS Safety Report 7842922-5 (Version None)
Quarter: 2011Q4

REPORT INFORMATION
  Report Type: 
  Country: None (occurrence: None)
  Receive Date: 20111025
  Receipt Date: 20111012
  Transmission Date: 20120403
  Serious: Yes (Hospitalization, Other)
  Sender: FDA-Public Use
  Company Number: US-BAYER-2011-050444

PATIENT
  Sex: Female
  Weight: 53.515 kg

DRUGS (4)
  1. IBUPROFEN (ADVIL) [Concomitant]
  2. LORTAB [Concomitant]
  3. YAZ [Suspect]
     Indication: PREMENSTRUAL SYNDROME
     Dosage: UNK
     Dates: start: 20070101, end: 20100101
  4. ACETAMINOPHEN [Concomitant]

REACTIONS (16)
  - BILIARY FISTULA [None]
  - PANCREATITIS [None]
  - FOCAL NODULAR HYPERPLASIA [None]
  - CHOLECYSTITIS CHRONIC [None]
  - GENERAL PHYSICAL HEALTH DETERIORATION [None]
  - SCAR [None]
  - CHOLELITHIASIS [None]
  - GALLBLADDER CHOLESTEROLOSIS [None]
  - ABDOMINAL PAIN UPPER [None]
  - SKIN NEOPLASM EXCISION [None]
  - INJURY [None]
  - PAIN [None]
  - POST PROCEDURAL BILE LEAK [None]
  - GALLBLADDER DISORDER [None]
  - NERVE INJURY [None]
  - HEPATIC LESION [None]
